FAERS Safety Report 17898646 (Version 1)
Quarter: 2020Q2

REPORT INFORMATION
  Report Type: Spontaneous
  Country: US (occurrence: US)
  Receive Date: 20200616
  Receipt Date: 20200616
  Transmission Date: 20200714
  Serious: Yes (Other)
  Sender: FDA-Public Use
  Company Number: US-SPECGX-T202001078

PATIENT
  Sex: Male

DRUGS (3)
  1. ROXICODONE [Suspect]
     Active Substance: OXYCODONE HYDROCHLORIDE
     Indication: BACK PAIN
     Dosage: UNK
     Route: 065
     Dates: start: 2011
  2. ROXICODONE [Suspect]
     Active Substance: OXYCODONE HYDROCHLORIDE
     Indication: PAIN IN EXTREMITY
  3. ROXICODONE [Suspect]
     Active Substance: OXYCODONE HYDROCHLORIDE
     Indication: ARTHRALGIA

REACTIONS (12)
  - Spinal operation [Unknown]
  - Dyskinesia [Unknown]
  - Insomnia [Unknown]
  - Back disorder [Unknown]
  - Knee operation [Unknown]
  - Hypersomnia [Unknown]
  - Night sweats [Unknown]
  - Muscle twitching [Unknown]
  - Arthropathy [Unknown]
  - Poor quality sleep [Unknown]
  - Dyschezia [Unknown]
  - Drug ineffective [Unknown]
